FAERS Safety Report 12402290 (Version 1)
Quarter: 2016Q2

REPORT INFORMATION
  Report Type: Spontaneous
  Country: AU (occurrence: AU)
  Receive Date: 20160525
  Receipt Date: 20160525
  Transmission Date: 20160815
  Serious: Yes (Other)
  Sender: FDA-Public Use
  Company Number: AU-AMGEN-AUSSP2016063931

PATIENT
  Age: 77 Year
  Sex: Female

DRUGS (3)
  1. SOMAC [Concomitant]
     Active Substance: PANTOPRAZOLE SODIUM
  2. PROLIA [Suspect]
     Active Substance: DENOSUMAB
     Indication: OSTEOPOROSIS
     Dosage: 60 MG, Q6MO
     Route: 065
  3. MULTIVITAMINS [Concomitant]
     Active Substance: VITAMINS

REACTIONS (6)
  - Peripheral swelling [Not Recovered/Not Resolved]
  - Fall [Unknown]
  - Myalgia [Not Recovered/Not Resolved]
  - Neck surgery [Unknown]
  - Pain in extremity [Not Recovered/Not Resolved]
  - Internal fixation of spine [Unknown]

NARRATIVE: CASE EVENT DATE: 2013
